FAERS Safety Report 9972846 (Version 1)
Quarter: 2014Q1

REPORT INFORMATION
  Report Type: Spontaneous
  Country: JP (occurrence: JP)
  Receive Date: 20140306
  Receipt Date: 20140306
  Transmission Date: 20141002
  Serious: Yes (Other)
  Sender: FDA-Public Use
  Company Number: JP-MYLANLABS-2014S1004446

PATIENT
  Age: 10 Year
  Sex: Male

DRUGS (14)
  1. CICLOSPORIN [Suspect]
     Indication: EVANS SYNDROME
     Route: 065
  2. CICLOSPORIN [Suspect]
     Indication: OFF LABEL USE
     Route: 065
  3. PREDNISOLONE [Suspect]
     Indication: EVANS SYNDROME
     Route: 065
  4. PREDNISOLONE [Suspect]
     Indication: OFF LABEL USE
     Route: 065
  5. GAMMAGLOBULIN [Concomitant]
     Indication: EVANS SYNDROME
     Dosage: HIGH DOSE
     Route: 042
  6. RITUXIMAB [Concomitant]
     Indication: EVANS SYNDROME
     Route: 065
  7. CEPHARANTHINE [Concomitant]
     Indication: EVANS SYNDROME
     Route: 065
  8. VINCRISTINE [Concomitant]
     Indication: EVANS SYNDROME
     Route: 065
  9. MYCOPHENOLATE MOFETIL [Concomitant]
     Indication: EVANS SYNDROME
     Route: 065
  10. MERCAPTOPURINE [Concomitant]
     Indication: EVANS SYNDROME
     Route: 065
  11. DAPSONE [Concomitant]
     Indication: EVANS SYNDROME
     Route: 065
  12. DANAZOL [Concomitant]
     Indication: EVANS SYNDROME
     Route: 065
  13. CYTARABINE [Concomitant]
     Indication: EVANS SYNDROME
     Dosage: HIGH DOSE
     Route: 065
  14. METHYLPREDNISOLONE [Concomitant]
     Dosage: PULSE THERAPY
     Route: 065

REACTIONS (11)
  - Cushingoid [Unknown]
  - Body height below normal [Unknown]
  - Spinal compression fracture [Unknown]
  - Osteoporosis [Unknown]
  - Acne [Unknown]
  - Skin papilloma [Unknown]
  - Headache [Unknown]
  - Headache [Unknown]
  - Musculoskeletal stiffness [Unknown]
  - Insomnia [Unknown]
  - Lymphopenia [Unknown]
